FAERS Safety Report 7090845-4 (Version None)
Quarter: 2010Q4

REPORT INFORMATION
  Report Type: 
  Country: None (occurrence: None)
  Receive Date: 20101012
  Receipt Date: 20100702
  Transmission Date: 20110411
  Serious: Yes (Hospitalization)
  Sender: FDA-Public Use
  Company Number: 1000014936

PATIENT

DRUGS (2)
  1. LEXAPRO [Suspect]
     Dates: start: 20100601
  2. SEROQUEL [Suspect]
     Dates: start: 20100601

REACTIONS (1)
  - ATRIAL FIBRILLATION [None]
